FAERS Safety Report 25633126 (Version 1)
Quarter: 2025Q3

REPORT INFORMATION
  Report Type: Spontaneous
  Country: EU (occurrence: EU)
  Receive Date: 20250801
  Receipt Date: 20250801
  Transmission Date: 20251020
  Serious: Yes (Death, Life-Threatening, Hospitalization, Other)
  Sender: RANBAXY
  Company Number: EU-SUN PHARMACEUTICAL INDUSTRIES LTD-2025RR-520015

PATIENT
  Age: 83 Year
  Sex: Male

DRUGS (33)
  1. OXALIPLATIN [Suspect]
     Active Substance: OXALIPLATIN
     Indication: Pancreatic carcinoma metastatic
     Route: 040
     Dates: start: 20180601, end: 20180601
  2. LEUCOVORIN CALCIUM [Suspect]
     Active Substance: LEUCOVORIN CALCIUM
     Indication: Pancreatic carcinoma metastatic
     Route: 040
     Dates: start: 20180601, end: 20180601
  3. FLUOROURACIL [Suspect]
     Active Substance: FLUOROURACIL
     Indication: Pancreatic carcinoma metastatic
     Route: 040
     Dates: start: 20180609, end: 20180609
  4. FLUOROURACIL [Suspect]
     Active Substance: FLUOROURACIL
     Route: 065
     Dates: start: 20180601, end: 20180601
  5. FLUOROURACIL [Suspect]
     Active Substance: FLUOROURACIL
     Route: 065
     Dates: start: 20180603, end: 20180603
  6. FLUOROURACIL [Suspect]
     Active Substance: FLUOROURACIL
     Route: 065
     Dates: start: 20180601, end: 20180601
  7. ONDANSETRON [Concomitant]
     Active Substance: ONDANSETRON
     Indication: Nausea
     Route: 065
     Dates: start: 20180607, end: 20180609
  8. HALOPERIDOL [Concomitant]
     Active Substance: HALOPERIDOL
     Indication: Agitation
     Route: 065
     Dates: start: 20180606, end: 20180607
  9. DEXAMETHASONE [Concomitant]
     Active Substance: DEXAMETHASONE
     Indication: Product used for unknown indication
     Route: 065
     Dates: start: 20180607, end: 20180607
  10. MCP ABZ [Concomitant]
     Indication: Nausea
     Route: 065
     Dates: start: 20180530, end: 20180605
  11. AMINO ACIDS\DEXTROSE\ELECTROLYTES NOS\SOYBEAN OIL [Concomitant]
     Active Substance: AMINO ACIDS\DEXTROSE\ELECTROLYTES NOS\SOYBEAN OIL
     Indication: Product used for unknown indication
     Route: 065
     Dates: start: 20180604, end: 20180607
  12. JONOSTERIL [Concomitant]
     Indication: Product used for unknown indication
     Route: 065
     Dates: start: 20180609, end: 20180611
  13. SULBACTAM [Concomitant]
     Active Substance: SULBACTAM
     Indication: Product used for unknown indication
     Route: 065
     Dates: start: 20180608, end: 20180611
  14. TORSEMIDE [Concomitant]
     Active Substance: TORSEMIDE
     Indication: Cardiac failure
     Route: 065
     Dates: start: 20180528, end: 20180607
  15. MORPHINE [Concomitant]
     Active Substance: MORPHINE
     Indication: Pancreatic carcinoma metastatic
     Route: 065
     Dates: start: 20180527
  16. GLANDOMED [Concomitant]
     Indication: Product used for unknown indication
     Route: 065
     Dates: start: 20180611
  17. LAXANS [Concomitant]
     Indication: Constipation prophylaxis
     Route: 065
     Dates: start: 20180527, end: 20180605
  18. NOVALGIN [Concomitant]
     Indication: Pancreatic carcinoma metastatic
     Route: 065
     Dates: start: 20180525, end: 20180605
  19. AMPICILLIN [Concomitant]
     Active Substance: AMPICILLIN
     Indication: Product used for unknown indication
     Route: 065
     Dates: start: 20180608, end: 20180611
  20. FLUMAZENIL [Concomitant]
     Active Substance: FLUMAZENIL
     Indication: Altered state of consciousness
     Route: 065
     Dates: start: 20180608, end: 20180608
  21. BUPRENORPHINE HYDROCHLORIDE [Concomitant]
     Active Substance: BUPRENORPHINE HYDROCHLORIDE
     Indication: Product used for unknown indication
     Route: 065
     Dates: start: 20180606, end: 20180611
  22. DIMENHYDRINATE [Concomitant]
     Active Substance: DIMENHYDRINATE
     Indication: Nausea
     Route: 065
     Dates: start: 20180602, end: 20180608
  23. PANTOPRAZOLE [Concomitant]
     Active Substance: PANTOPRAZOLE
     Indication: Product used for unknown indication
     Route: 065
     Dates: start: 20180115, end: 20180611
  24. SPIRONOLACTONE [Concomitant]
     Active Substance: SPIRONOLACTONE
     Indication: Cardiac failure
     Route: 065
     Dates: start: 20180518
  25. SPIRONOLACTONE [Concomitant]
     Active Substance: SPIRONOLACTONE
     Indication: Ascites
     Route: 065
     Dates: start: 20180530, end: 20180603
  26. NORSPAN [Concomitant]
     Active Substance: BUPRENORPHINE
     Indication: Pain
     Route: 065
     Dates: start: 20180605, end: 20180605
  27. CERTOPARIN SODIUM [Concomitant]
     Active Substance: CERTOPARIN SODIUM
     Indication: Thrombosis prophylaxis
     Route: 065
     Dates: start: 20180518, end: 20180608
  28. ELECTROLYTES NOS\MINERALS [Concomitant]
     Active Substance: ELECTROLYTES NOS\MINERALS
     Indication: Product used for unknown indication
     Route: 065
     Dates: start: 20180603, end: 20180608
  29. HERBALS\PHENYL SALICYLATE [Concomitant]
     Active Substance: HERBALS\PHENYL SALICYLATE
     Indication: Product used for unknown indication
     Route: 065
     Dates: start: 20180611
  30. AMPHO-MORONAL [Concomitant]
     Active Substance: AMPHOTERICIN B
     Indication: Mucosal inflammation
     Route: 065
  31. MIRTAZAPINE [Concomitant]
     Active Substance: MIRTAZAPINE
     Indication: Agitation
     Route: 065
     Dates: start: 20180603, end: 20180610
  32. METOPROLOL [Concomitant]
     Active Substance: METOPROLOL
     Indication: Hypertension
     Route: 065
  33. METAMIZOLE [Concomitant]
     Active Substance: METAMIZOLE
     Indication: Pain
     Route: 065
     Dates: start: 20180115, end: 20180605

REACTIONS (3)
  - Sepsis [Fatal]
  - Stomatitis [Not Recovered/Not Resolved]
  - Condition aggravated [Not Recovered/Not Resolved]

NARRATIVE: CASE EVENT DATE: 20180610
